FAERS Safety Report 9683439 (Version 1)
Quarter: 2013Q4

REPORT INFORMATION
  Report Type: Spontaneous
  Country: US (occurrence: US)
  Receive Date: 20131112
  Receipt Date: 20131112
  Transmission Date: 20140711
  Serious: Yes (Other)
  Sender: FDA-Public Use
  Company Number: US-ASTRAZENECA-2013SE81546

PATIENT
  Age: 55 Year
  Sex: Female

DRUGS (4)
  1. BRILINTA [Suspect]
     Route: 048
     Dates: start: 2013
  2. STATIN [Concomitant]
  3. INSULIN [Concomitant]
     Indication: DIABETES MELLITUS
  4. CARVEDILOL [Concomitant]

REACTIONS (2)
  - Thrombosis in device [Unknown]
  - Malaise [Unknown]
